FAERS Safety Report 7518627-7 (Version None)
Quarter: 2011Q2

REPORT INFORMATION
  Report Type: 
  Country: None (occurrence: None)
  Receive Date: 20110601
  Receipt Date: 20110601
  Transmission Date: 20111010
  Serious: Yes (Life-Threatening, Hospitalization)
  Sender: FDA-Public Use
  Company Number: None

PATIENT
  Age: 41 Year
  Sex: Female
  Weight: 84.369 kg

DRUGS (1)
  1. CIPROFLOXACIN HCL [Suspect]

REACTIONS (16)
  - CRYING [None]
  - VISION BLURRED [None]
  - MUSCLE SPASMS [None]
  - INSOMNIA [None]
  - ASTHENIA [None]
  - FEAR [None]
  - AGGRESSION [None]
  - MUSCLE TIGHTNESS [None]
  - EYE MOVEMENT DISORDER [None]
  - MUSCLE CONTRACTIONS INVOLUNTARY [None]
  - JOINT CREPITATION [None]
  - ANGER [None]
  - MYALGIA [None]
  - OEDEMA PERIPHERAL [None]
  - ARTHROPATHY [None]
  - FEELING HOT [None]
